FAERS Safety Report 13301798 (Version 3)
Quarter: 2017Q1

REPORT INFORMATION
  Report Type: Spontaneous
  Country: JP (occurrence: JP)
  Receive Date: 20170307
  Receipt Date: 20170321
  Transmission Date: 20170428
  Serious: Yes (Other)
  Sender: FDA-Public Use
  Company Number: JP-BAXALTA-2017BXJ001635AA

PATIENT
  Age: 22 Month
  Sex: Male

DRUGS (7)
  1. ADVATE [Suspect]
     Active Substance: ANTIHEMOPHILIC FACTOR, HUMAN RECOMBINANT
     Indication: FACTOR VIII DEFICIENCY
     Dosage: ITI THERAPY
     Route: 042
  2. FEIBA [Suspect]
     Active Substance: ANTI-INHIBITOR COAGULANT COMPLEX
     Indication: FACTOR VIII INHIBITION
     Dosage: ON DEMAND
     Route: 042
  3. CONFACT F [Concomitant]
     Active Substance: ANTIHEMOPHILIC FACTOR HUMAN
     Indication: FACTOR VIII INHIBITION
     Dosage: 1000 IU, 3X A WEEK, ITI
     Route: 042
  4. KOGENATE FS [Suspect]
     Active Substance: ANTIHEMOPHILIC FACTOR, HUMAN RECOMBINANT
     Indication: FACTOR VIII DEFICIENCY
     Dosage: 1 TO 2 TIMES PER WEEK
     Route: 042
  5. FEIBA [Suspect]
     Active Substance: ANTI-INHIBITOR COAGULANT COMPLEX
     Dosage: 1000 IU, 3X A WEEK, PROPHYLAXIS
     Route: 042
  6. ADVATE [Suspect]
     Active Substance: ANTIHEMOPHILIC FACTOR, HUMAN RECOMBINANT
     Dosage: 1000 IU, 3X A WEEK, ITI THERAPY, AT THE AGE OF 6 YEARS
     Route: 042
  7. FEIBA [Suspect]
     Active Substance: ANTI-INHIBITOR COAGULANT COMPLEX
     Dosage: 1000 IU, 2X A WEEK, AT THE AGE OF 4 YEARS AND 6 MONTHS, PROPHYLAXIS
     Route: 042

REACTIONS (4)
  - Haemarthrosis [Unknown]
  - Factor VIII inhibition [Recovered/Resolved]
  - Haemorrhage [Unknown]
  - Condition aggravated [Recovered/Resolved]
